FAERS Safety Report 6833520-0 (Version None)
Quarter: 2010Q3

REPORT INFORMATION
  Report Type: 
  Country: None (occurrence: None)
  Receive Date: 20100712
  Receipt Date: 20070327
  Transmission Date: 20110219
  Serious: No
  Sender: FDA-Public Use
  Company Number: US-PFIZER INC-2007025143

PATIENT
  Sex: Female
  Weight: 58.97 kg

DRUGS (6)
  1. CHANTIX [Suspect]
     Indication: SMOKING CESSATION THERAPY
     Dates: start: 20070322
  2. ENTOCORT EC [Concomitant]
     Indication: COLITIS
  3. LISINOPRIL [Concomitant]
     Indication: BLOOD PRESSURE
  4. DILTIAZEM [Concomitant]
     Indication: BLOOD PRESSURE
  5. LOVASTATIN [Concomitant]
     Indication: BLOOD CHOLESTEROL
  6. NEXIUM [Concomitant]
     Indication: GASTROOESOPHAGEAL REFLUX DISEASE

REACTIONS (1)
  - FLATULENCE [None]
